FAERS Safety Report 20999985 (Version 10)
Quarter: 2022Q4

REPORT INFORMATION
  Report Type: Spontaneous
  Country: JP (occurrence: JP)
  Receive Date: 20220623
  Receipt Date: 20221230
  Transmission Date: 20230113
  Serious: Yes (Hospitalization, Other)
  Sender: FDA-Public Use
  Company Number: JP-UNITED THERAPEUTICS-UNT-2022-003448

PATIENT
  Sex: Female

DRUGS (47)
  1. UNITUXIN [Suspect]
     Active Substance: DINUTUXIMAB
     Indication: Neuroblastoma
     Dosage: UNK, CYCLICAL (CYCLE 1)
     Route: 041
     Dates: start: 20220124, end: 20220127
  2. UNITUXIN [Suspect]
     Active Substance: DINUTUXIMAB
     Dosage: UNK, CYCLICAL (CYCLE 2)
     Route: 041
     Dates: start: 20220301, end: 20220304
  3. UNITUXIN [Suspect]
     Active Substance: DINUTUXIMAB
     Dosage: UNK, CYCLICAL (CYCLE 3)
     Route: 041
     Dates: start: 20220517, end: 20220520
  4. UNITUXIN [Suspect]
     Active Substance: DINUTUXIMAB
     Dosage: UNK, CYCLICAL (CYCLE 4)
     Route: 041
     Dates: start: 20220823, end: 20220826
  5. UNITUXIN [Suspect]
     Active Substance: DINUTUXIMAB
     Dosage: UNK, CYCLICAL (CYCLE 5)
     Route: 041
     Dates: start: 20220920, end: 20220923
  6. UNITUXIN [Suspect]
     Active Substance: DINUTUXIMAB
     Dosage: UNK, CYCLICAL (CYCLE 6)
     Route: 041
     Dates: start: 20221025, end: 20221028
  7. FILGRASTIM [Suspect]
     Active Substance: FILGRASTIM
     Indication: Neuroblastoma
     Dosage: UNK
     Route: 065
     Dates: start: 20220121, end: 20220203
  8. FILGRASTIM [Suspect]
     Active Substance: FILGRASTIM
     Dosage: UNK
     Route: 065
     Dates: start: 20220514, end: 20220527
  9. FILGRASTIM [Suspect]
     Active Substance: FILGRASTIM
     Dosage: UNK
     Route: 065
     Dates: start: 20220917, end: 20220930
  10. TECELEUKIN [Suspect]
     Active Substance: TECELEUKIN
     Indication: Neuroblastoma
     Dosage: UNK
     Route: 065
     Dates: start: 20220222, end: 20220225
  11. TECELEUKIN [Suspect]
     Active Substance: TECELEUKIN
     Dosage: UNK
     Route: 065
     Dates: start: 20220301, end: 20220304
  12. TECELEUKIN [Suspect]
     Active Substance: TECELEUKIN
     Dosage: UNK
     Route: 065
     Dates: start: 20220816, end: 20220819
  13. TECELEUKIN [Suspect]
     Active Substance: TECELEUKIN
     Dosage: UNK
     Route: 065
     Dates: start: 20220823, end: 20220826
  14. TECELEUKIN [Suspect]
     Active Substance: TECELEUKIN
     Dosage: UNK
     Route: 065
     Dates: start: 20221018, end: 20221021
  15. TECELEUKIN [Suspect]
     Active Substance: TECELEUKIN
     Dosage: UNK
     Route: 065
     Dates: start: 20221025, end: 20221028
  16. HYDROXYZINE [Concomitant]
     Active Substance: HYDROXYZINE HYDROCHLORIDE
     Indication: Prophylaxis
     Dosage: UNK
     Route: 065
     Dates: start: 20220124, end: 20220127
  17. HYDROXYZINE [Concomitant]
     Active Substance: HYDROXYZINE HYDROCHLORIDE
     Dosage: UNK
     Route: 065
     Dates: start: 20220222, end: 20220225
  18. HYDROXYZINE [Concomitant]
     Active Substance: HYDROXYZINE HYDROCHLORIDE
     Dosage: UNK
     Route: 065
     Dates: start: 20220301, end: 20220304
  19. HYDROXYZINE [Concomitant]
     Active Substance: HYDROXYZINE HYDROCHLORIDE
     Dosage: UNK
     Route: 065
     Dates: start: 20220517, end: 20220520
  20. HYDROXYZINE [Concomitant]
     Active Substance: HYDROXYZINE HYDROCHLORIDE
     Dosage: UNK
     Route: 065
     Dates: start: 20220816, end: 20220819
  21. HYDROXYZINE [Concomitant]
     Active Substance: HYDROXYZINE HYDROCHLORIDE
     Dosage: UNK
     Route: 065
     Dates: start: 20220823, end: 20220826
  22. HYDROXYZINE [Concomitant]
     Active Substance: HYDROXYZINE HYDROCHLORIDE
     Dosage: UNK
     Route: 065
     Dates: start: 20220920, end: 20220923
  23. HYDROXYZINE [Concomitant]
     Active Substance: HYDROXYZINE HYDROCHLORIDE
     Dosage: UNK
     Route: 065
     Dates: start: 20221018, end: 20221021
  24. HYDROXYZINE [Concomitant]
     Active Substance: HYDROXYZINE HYDROCHLORIDE
     Dosage: UNK
     Route: 065
     Dates: start: 20221025, end: 20221028
  25. ACETAMINOPHEN [Concomitant]
     Active Substance: ACETAMINOPHEN
     Indication: Prophylaxis
     Dosage: UNK
     Route: 065
     Dates: start: 20220124, end: 20220127
  26. ACETAMINOPHEN [Concomitant]
     Active Substance: ACETAMINOPHEN
     Dosage: UNK
     Route: 065
     Dates: start: 20220222, end: 20220225
  27. ACETAMINOPHEN [Concomitant]
     Active Substance: ACETAMINOPHEN
     Dosage: UNK
     Route: 065
     Dates: start: 20220301, end: 20220304
  28. ACETAMINOPHEN [Concomitant]
     Active Substance: ACETAMINOPHEN
     Dosage: UNK
     Route: 065
     Dates: start: 20220517, end: 20220520
  29. ACETAMINOPHEN [Concomitant]
     Active Substance: ACETAMINOPHEN
     Dosage: UNK
     Route: 065
     Dates: start: 20220816, end: 20220819
  30. ACETAMINOPHEN [Concomitant]
     Active Substance: ACETAMINOPHEN
     Dosage: UNK
     Route: 065
     Dates: start: 20220823, end: 20220826
  31. ACETAMINOPHEN [Concomitant]
     Active Substance: ACETAMINOPHEN
     Dosage: UNK
     Route: 065
     Dates: start: 20220920, end: 20220923
  32. ACETAMINOPHEN [Concomitant]
     Active Substance: ACETAMINOPHEN
     Dosage: UNK
     Route: 065
     Dates: start: 20221018, end: 20221021
  33. ACETAMINOPHEN [Concomitant]
     Active Substance: ACETAMINOPHEN
     Dosage: UNK
     Route: 065
     Dates: start: 20221025, end: 20221028
  34. MORPHINE [Concomitant]
     Active Substance: MORPHINE
     Indication: Prophylaxis
     Dosage: UNK
     Route: 065
     Dates: start: 20220124, end: 20220127
  35. MORPHINE [Concomitant]
     Active Substance: MORPHINE
     Dosage: UNK
     Route: 065
     Dates: start: 20220301, end: 20220304
  36. MORPHINE [Concomitant]
     Active Substance: MORPHINE
     Dosage: UNK
     Route: 065
     Dates: start: 20220517, end: 20220520
  37. MORPHINE [Concomitant]
     Active Substance: MORPHINE
     Dosage: UNK
     Route: 065
     Dates: start: 20220823, end: 20220826
  38. MORPHINE [Concomitant]
     Active Substance: MORPHINE
     Dosage: UNK
     Route: 065
     Dates: start: 20220920, end: 20220923
  39. MORPHINE [Concomitant]
     Active Substance: MORPHINE
     Dosage: UNK
     Route: 065
     Dates: start: 20221025, end: 20221028
  40. GLYCYRRHIZIN [Concomitant]
     Active Substance: GLYCYRRHIZIN
     Indication: Hepatic function abnormal
     Dosage: UNK
     Route: 065
     Dates: start: 20220816, end: 20220827
  41. GLYCYRRHIZIN [Concomitant]
     Active Substance: GLYCYRRHIZIN
     Dosage: UNK
     Route: 065
     Dates: start: 20220920, end: 20220923
  42. GLYCYRRHIZIN [Concomitant]
     Active Substance: GLYCYRRHIZIN
     Dosage: UNK
     Route: 065
     Dates: start: 20221018, end: 20221030
  43. FUROSEMIDE [Concomitant]
     Active Substance: FUROSEMIDE
     Indication: Urine output decreased
     Dosage: UNK
     Route: 065
     Dates: start: 20220125, end: 20220128
  44. FUROSEMIDE [Concomitant]
     Active Substance: FUROSEMIDE
     Dosage: UNK
     Route: 065
     Dates: start: 20220302, end: 20220305
  45. METOCLOPRAMIDE [Concomitant]
     Active Substance: METOCLOPRAMIDE
     Indication: Nausea
     Dosage: UNK
     Route: 065
     Dates: start: 20220125, end: 20220127
  46. GLUTATHIONE [Concomitant]
     Active Substance: GLUTATHIONE
     Indication: Prophylaxis
     Dosage: UNK
     Route: 065
     Dates: start: 20220920, end: 20220923
  47. GLUTATHIONE [Concomitant]
     Active Substance: GLUTATHIONE
     Dosage: UNK
     Route: 065
     Dates: start: 20221018, end: 20221030

REACTIONS (43)
  - Device related infection [Unknown]
  - Bacteraemia [Unknown]
  - Pyrexia [Unknown]
  - C-reactive protein increased [Unknown]
  - Alanine aminotransferase increased [Recovering/Resolving]
  - Aspartate aminotransferase increased [Recovering/Resolving]
  - Vomiting [Recovering/Resolving]
  - Pyrexia [Recovering/Resolving]
  - Pain [Recovering/Resolving]
  - Fibrin D dimer increased [Recovering/Resolving]
  - White blood cell count increased [Recovering/Resolving]
  - Gamma-glutamyltransferase increased [Recovering/Resolving]
  - Alanine aminotransferase increased [Recovering/Resolving]
  - Pyrexia [Recovering/Resolving]
  - Hypoalbuminaemia [Recovering/Resolving]
  - Oedema [Recovering/Resolving]
  - Urine output decreased [Recovering/Resolving]
  - Fibrin D dimer increased [Recovering/Resolving]
  - Coronavirus test positive [Unknown]
  - Abdominal pain [Recovering/Resolving]
  - Hypoalbuminaemia [Recovering/Resolving]
  - Pyrexia [Recovering/Resolving]
  - Coronavirus test positive [Unknown]
  - Neutrophil count decreased [Recovering/Resolving]
  - Gamma-glutamyltransferase increased [Recovering/Resolving]
  - Alanine aminotransferase increased [Recovering/Resolving]
  - Aspartate aminotransferase increased [Recovering/Resolving]
  - Pyrexia [Recovering/Resolving]
  - Hypoalbuminaemia [Recovering/Resolving]
  - Abdominal pain [Recovering/Resolving]
  - Alanine aminotransferase increased [Recovering/Resolving]
  - Aspartate aminotransferase increased [Recovering/Resolving]
  - Pyrexia [Recovering/Resolving]
  - Hypoalbuminaemia [Recovering/Resolving]
  - Pain in extremity [Recovering/Resolving]
  - Hypoalbuminaemia [Recovering/Resolving]
  - Pyrexia [Recovering/Resolving]
  - Aspartate aminotransferase increased [Recovering/Resolving]
  - Alanine aminotransferase increased [Recovering/Resolving]
  - Gamma-glutamyltransferase increased [Recovering/Resolving]
  - Neutrophil count decreased [Recovering/Resolving]
  - Urine output decreased [Recovering/Resolving]
  - Pyrexia [Recovered/Resolved]

NARRATIVE: CASE EVENT DATE: 20220101
